FAERS Safety Report 9760162 (Version 1)
Quarter: 2013Q4

REPORT INFORMATION
  Report Type: Spontaneous
  Country: SE (occurrence: None)
  Receive Date: 20131212
  Receipt Date: 20131212
  Transmission Date: 20140711
  Serious: Yes (Hospitalization)
  Sender: FDA-Public Use
  Company Number: 2013AP010333

PATIENT
  Age: 16 Year
  Sex: Male

DRUGS (8)
  1. RISPERIDONE (RISPERIDONE) [Suspect]
     Indication: BIPOLAR DISORDER
     Dosage: 4 MG; UNKNOWN, QD
  2. RISPERIDONE (RISPERIDONE) [Suspect]
     Indication: ABNORMAL BEHAVIOUR
     Dosage: 4 MG; UNKNOWN, QD
  3. TOPIRAMATE [Suspect]
     Indication: ABNORMAL BEHAVIOUR
     Dosage: 200 MG; UNKNOWN, UNK; QD
  4. TOPIRAMATE [Suspect]
     Indication: BIPOLAR DISORDER
     Dosage: 200 MG; UNKNOWN, UNK; QD
  5. ARIPIPRAZOLE (ARIPIPRAZOLE) [Suspect]
     Indication: BIPOLAR DISORDER
     Dosage: 15 MG; UNKNOWN; QD
  6. ARIPIPRAZOLE (ARIPIPRAZOLE) [Suspect]
     Indication: ABNORMAL BEHAVIOUR
     Dosage: 15 MG; UNKNOWN; QD
  7. VENLAFAXINE (VENLAFAXINE) [Suspect]
     Dosage: 300 MG; UNKNOWN; UNK; QD
  8. ZONISAMIDE (ZONISAMIDE) UNKNOWN [Suspect]
     Dosage: 400 MG; QD

REACTIONS (3)
  - Rhabdomyolysis [None]
  - Renal failure acute [None]
  - Serotonin syndrome [None]
